FAERS Safety Report 5779573-2 (Version None)
Quarter: 2008Q2

REPORT INFORMATION
  Report Type: 
  Country: None (occurrence: None)
  Receive Date: 20080619
  Receipt Date: 20080403
  Transmission Date: 20081010
  Serious: No
  Sender: FDA-Public Use
  Company Number: US-ASTRAZENECA-2008UW06732

PATIENT
  Age: 26172 Day
  Sex: Female

DRUGS (2)
  1. ATACAND HCT [Suspect]
     Route: 048
     Dates: start: 20080324, end: 20080403
  2. ATACAND [Concomitant]

REACTIONS (2)
  - ASTHENIA [None]
  - SENSATION OF HEAVINESS [None]
